FAERS Safety Report 4552549-9 (Version None)
Quarter: 2005Q1

REPORT INFORMATION
  Report Type: 
  Country: None (occurrence: None)
  Receive Date: 20050114
  Receipt Date: 20040817
  Transmission Date: 20050727
  Serious: No
  Sender: FDA-Public Use
  Company Number: US-GLAXOSMITHKLINE-A0522462A

PATIENT
  Age: 52 Year
  Sex: Male

DRUGS (2)
  1. IMITREX [Suspect]
     Indication: CLUSTER HEADACHE
     Dosage: 6MG AS REQUIRED
     Route: 058
  2. METRONIDAZOLE [Concomitant]

REACTIONS (2)
  - DRUG INEFFECTIVE [None]
  - PARAESTHESIA [None]
